FAERS Safety Report 4421887-2 (Version None)
Quarter: 2004Q3

REPORT INFORMATION
  Report Type: 
  Country: None (occurrence: None)
  Receive Date: 20040805
  Receipt Date: 20040726
  Transmission Date: 20050211
  Serious: Yes (Other)
  Sender: FDA-Public Use
  Company Number: 2004051190

PATIENT
  Age: 15 Year
  Sex: Female

DRUGS (3)
  1. DILANTIN [Suspect]
     Indication: GRAND MAL CONVULSION
     Dosage: 150 MG (50 MG), ORAL
     Route: 048
     Dates: start: 20040423, end: 20040430
  2. RISPERDAL [Concomitant]
  3. OXCARBAZEPINE (OXCARBAZEPINE) [Concomitant]

REACTIONS (3)
  - PARTIAL SEIZURES [None]
  - PYREXIA [None]
  - RASH [None]
